FAERS Safety Report 19054380 (Version 1)
Quarter: 2021Q1

REPORT INFORMATION
  Report Type: Other
  Country: CN (occurrence: CN)
  Receive Date: 20210325
  Receipt Date: 20210325
  Transmission Date: 20210420
  Serious: Yes (Other)
  Sender: FDA-Public Use
  Company Number: CN-ROCHE-2793008

PATIENT

DRUGS (4)
  1. CAPECITABINE. [Suspect]
     Active Substance: CAPECITABINE
     Indication: RECTAL CANCER
     Dosage: 825 MG/M2 ORALLY TWICE DAILY, 5 DAYS/WEEK (RISK FACTORS SUCH AS POSITIVE MRF OR EMVI WERE RECOMMENDE
     Route: 048
  2. 5?FLUOROURACIL [Suspect]
     Active Substance: FLUOROURACIL
     Indication: RECTAL CANCER
     Route: 065
  3. OXALIPLATIN. [Suspect]
     Active Substance: OXALIPLATIN
     Indication: RECTAL CANCER
     Dosage: RISK FACTORS SUCH AS POSITIVE MRF OR EMVI WERE RECOMMENDED WEEKLY CONCURRENT CHEMOTHERAPY OF CAPEOX.
     Route: 042
  4. LEUCOVORIN. [Suspect]
     Active Substance: LEUCOVORIN
     Indication: RECTAL CANCER
     Route: 065

REACTIONS (9)
  - Anaemia [Unknown]
  - Proctitis [Unknown]
  - Urinary tract toxicity [Unknown]
  - Unevaluable event [Unknown]
  - Wound infection [Unknown]
  - Leukopenia [Unknown]
  - Radiation skin injury [Unknown]
  - Anastomotic leak [Unknown]
  - Small intestinal obstruction [Unknown]
